FAERS Safety Report 10050342 (Version 1)
Quarter: 2014Q2

REPORT INFORMATION
  Report Type: Spontaneous
  Country: US (occurrence: US)
  Receive Date: 20140401
  Receipt Date: 20140401
  Transmission Date: 20141212
  Serious: Yes (Hospitalization)
  Sender: FDA-Public Use
  Company Number: US-BAYER-2014-049142

PATIENT
  Age: 28 Year
  Sex: Female
  Weight: 125.17 kg

DRUGS (12)
  1. YAZ [Suspect]
  2. ACETIC ACID [Concomitant]
     Dosage: 2-3 DRIPS EACH EAR AS NEEDED
     Dates: start: 20081125
  3. PROVENTIL [Concomitant]
     Dosage: 1-2 PUFFS EVERY 4 HOURS AS NEEDED
     Dates: start: 20081125
  4. CIPROFLOXACIN [Concomitant]
     Dosage: 3 DROPS IN AFFECTED EAR AS NEEDED
     Dates: start: 20081125
  5. FLEXERIL [Concomitant]
     Indication: SLEEP DISORDER THERAPY
     Dosage: 10 MG, PRN
     Dates: start: 20081125
  6. DEXAMETHASONE [Concomitant]
     Dosage: 3 DROPS IN EACH EAR AS NEEDED
     Dates: start: 20081125
  7. DEPAKOTE [Concomitant]
     Dosage: 500 MG, 2 TABLETS IN MORNING AND 1 TABLET IN EVENING
     Dates: start: 20081125
  8. CYMBALTA [Concomitant]
     Dosage: 30 MG, DAILY
     Dates: start: 20081125
  9. PROZAC [Concomitant]
     Dosage: 20 MG, 3 CAPSULES DAILY
     Dates: start: 20081125
  10. PREVACID [Concomitant]
     Dosage: 30 MG, BID
     Dates: start: 20081125
  11. LYRICA [Concomitant]
     Dosage: 100 MG, TID
     Dates: start: 20081125
  12. ULTRAM [Concomitant]
     Dosage: 50 MG EVERY 4 TO 6 HOURS AS NEEDED
     Dates: start: 20081125

REACTIONS (1)
  - Pulmonary embolism [None]
